FAERS Safety Report 4823390-4 (Version None)
Quarter: 2005Q4

REPORT INFORMATION
  Report Type: 
  Country: None (occurrence: None)
  Receive Date: 20051107
  Receipt Date: 20051028
  Transmission Date: 20060501
  Serious: Yes (Hospitalization)
  Sender: FDA-Public Use
  Company Number: 2005-10-1689

PATIENT
  Age: 76 Year
  Sex: Male

DRUGS (9)
  1. TEMODAL [Suspect]
     Indication: ASTROCYTOMA
     Dosage: 75 MG/M2 QD ORAL
     Route: 048
     Dates: start: 20050812, end: 20050908
  2. COTRIM FORTE (TRIMETHOPRIM) [Suspect]
     Indication: PYREXIA
     Dosage: 800 MG ORAL
     Route: 048
     Dates: start: 20050101, end: 20050920
  3. DIAMICRON [Suspect]
     Indication: DIABETES MELLITUS NON-INSULIN-DEPENDENT
     Dosage: 30 MG OD ORAL
     Route: 048
     Dates: end: 20050920
  4. FORTECORTIN [Concomitant]
  5. NEXIUM [Concomitant]
  6. BELOC-ZOK [Concomitant]
  7. GLUCOPHAGE [Concomitant]
  8. DIGOXIN [Concomitant]
  9. ASPARTATE MAGNESIUM [Concomitant]

REACTIONS (7)
  - ANAEMIA [None]
  - BACTERIA BLOOD IDENTIFIED [None]
  - ESCHERICHIA INFECTION [None]
  - FEBRILE NEUTROPENIA [None]
  - PANCYTOPENIA [None]
  - PETECHIAE [None]
  - PYREXIA [None]
